FAERS Safety Report 6083841-7 (Version None)
Quarter: 2009Q1

REPORT INFORMATION
  Report Type: 
  Country: None (occurrence: None)
  Receive Date: 20090219
  Receipt Date: 20090213
  Transmission Date: 20090719
  Serious: Yes (Death, Other)
  Sender: FDA-Public Use
  Company Number: FR-ELI_LILLY_AND_COMPANY-FR200811003529

PATIENT
  Sex: Male
  Weight: 70 kg

DRUGS (15)
  1. XIGRIS [Suspect]
     Indication: MULTI-ORGAN FAILURE
     Dosage: UNK, UNKNOWN
     Route: 042
     Dates: start: 20081008
  2. OLICLINOMEL [Concomitant]
     Indication: NUTRITIONAL SUPPORT
     Dosage: UNK, UNKNOWN
     Route: 042
     Dates: start: 20081007
  3. TIENAM [Concomitant]
     Dosage: 1 G, 3/D
     Route: 042
     Dates: start: 20081007
  4. CIFLOX [Concomitant]
     Dosage: 400 MG, 3/D
     Route: 042
     Dates: start: 20081007
  5. VFEND [Concomitant]
     Dosage: 200 MG, 2/D
     Route: 042
     Dates: start: 20081007
  6. ZYVOXID [Concomitant]
     Dosage: 600 MG, 2/D
     Route: 042
     Dates: start: 20081007
  7. INIPOMP [Concomitant]
     Dosage: 40 MG, DAILY (1/D)
     Route: 042
     Dates: start: 20081007
  8. SOLU-MEDROL [Concomitant]
     Dosage: 20 MG, DAILY (1/D)
     Route: 042
     Dates: start: 20081007
  9. NORADRENALINE [Concomitant]
     Indication: SHOCK
     Dosage: UNK, UNKNOWN
     Route: 042
     Dates: start: 20081007
  10. HYDROCORTISONE [Concomitant]
     Indication: SHOCK
     Dosage: 200 MG, UNKNOWN
     Route: 042
     Dates: start: 20081008
  11. LASILIX [Concomitant]
     Indication: POLYURIA
     Dosage: 20 MG, EVERY HOUR
     Route: 042
     Dates: start: 20081007
  12. UMULINE [Concomitant]
     Indication: HYPERGLYCAEMIA
     Dosage: UNK, UNKNOWN
     Route: 042
     Dates: start: 20081007
  13. PROGRAF [Concomitant]
     Dosage: 0.5 MG, DAILY (1/D)
     Route: 048
     Dates: start: 20081007
  14. DELURSAN [Concomitant]
     Dosage: 2 D/F, 2/D
     Route: 048
     Dates: start: 20081007
  15. BLOOD, WHOLE [Concomitant]
     Dosage: UNK, UNKNOWN
     Route: 065

REACTIONS (2)
  - CEREBRAL HAEMORRHAGE [None]
  - HEPATIC FUNCTION ABNORMAL [None]
